FAERS Safety Report 19983900 (Version 3)
Quarter: 2022Q1

REPORT INFORMATION
  Report Type: Spontaneous
  Country: US (occurrence: US)
  Receive Date: 20211021
  Receipt Date: 20220202
  Transmission Date: 20220424
  Serious: Yes (Hospitalization, Other)
  Sender: FDA-Public Use
  Company Number: US-BAYER-2021A227571

PATIENT
  Age: 63 Year
  Sex: Female

DRUGS (3)
  1. TINACTIN [Suspect]
     Active Substance: TOLNAFTATE
     Indication: Tinea pedis
     Dosage: TWICE A DAY FOR 14 DAYS
     Route: 061
     Dates: start: 20200129, end: 20200531
  2. TASIGNA [Suspect]
     Active Substance: NILOTINIB
     Indication: Drug therapy
     Dosage: UNK
     Dates: start: 2021
  3. VITAMIN D NOS [Concomitant]
     Active Substance: VITAMIN D NOS
     Dosage: UNK

REACTIONS (6)
  - Chronic leukaemia [Not Recovered/Not Resolved]
  - Adverse drug reaction [None]
  - Incorrect product administration duration [None]
  - Recalled product administered [None]
  - Adverse event [None]
  - Urticaria [None]

NARRATIVE: CASE EVENT DATE: 20200101
